FAERS Safety Report 14549601 (Version 1)
Quarter: 2018Q1

REPORT INFORMATION
  Report Type: Report from Study
  Country: US (occurrence: US)
  Receive Date: 20180219
  Receipt Date: 20180219
  Transmission Date: 20180509
  Serious: No
  Sender: FDA-Public Use
  Company Number: US-AMGEN-USASL2018020062

PATIENT
  Age: 44 Year
  Sex: Female

DRUGS (3)
  1. ENBREL [Suspect]
     Active Substance: ETANERCEPT
     Dosage: UNK
     Route: 065
  2. ENBREL [Suspect]
     Active Substance: ETANERCEPT
     Indication: RHEUMATOID ARTHRITIS
     Dosage: UNK
     Route: 065
  3. ENBREL [Suspect]
     Active Substance: ETANERCEPT
     Dosage: UNK
     Route: 065

REACTIONS (10)
  - Fatigue [Unknown]
  - Myalgia [Unknown]
  - Musculoskeletal disorder [Unknown]
  - Headache [Unknown]
  - Uterine leiomyoma [Unknown]
  - Injection site pain [Unknown]
  - Muscle spasms [Unknown]
  - Neck pain [Unknown]
  - Cognitive disorder [Unknown]
  - Tendon pain [Unknown]

NARRATIVE: CASE EVENT DATE: 2017
